FAERS Safety Report 11392623 (Version 4)
Quarter: 2015Q4

REPORT INFORMATION
  Report Type: Spontaneous
  Country: JP (occurrence: JP)
  Receive Date: 20150818
  Receipt Date: 20151118
  Transmission Date: 20160304
  Serious: Yes (Death, Other)
  Sender: FDA-Public Use
  Company Number: JP-PFIZER INC-2015252811

PATIENT
  Age: 89 Year
  Sex: Female

DRUGS (3)
  1. ISONIAZID. [Concomitant]
     Active Substance: ISONIAZID
     Indication: PULMONARY TUBERCULOSIS
     Dosage: 200 MG, DAILY
     Route: 048
     Dates: end: 20150723
  2. ZOSYN [Suspect]
     Active Substance: PIPERACILLIN SODIUM\TAZOBACTAM SODIUM
     Indication: PNEUMONIA
     Dosage: 4.5 G, 2X/DAY
     Route: 041
     Dates: start: 20150615, end: 20150622
  3. ZOSYN [Suspect]
     Active Substance: PIPERACILLIN SODIUM\TAZOBACTAM SODIUM
     Dosage: 4.5 G, 2X/DAY
     Route: 041
     Dates: start: 20150715, end: 20150723

REACTIONS (3)
  - Pneumonia [Fatal]
  - Rash [Recovering/Resolving]
  - Acute generalised exanthematous pustulosis [Recovering/Resolving]

NARRATIVE: CASE EVENT DATE: 20150627
